FAERS Safety Report 6466171-0 (Version None)
Quarter: 2009Q4

REPORT INFORMATION
  Report Type: 
  Country: None (occurrence: None)
  Receive Date: 20091202
  Receipt Date: 20091124
  Transmission Date: 20100525
  Serious: Yes (Hospitalization, Disabling, Other)
  Sender: FDA-Public Use
  Company Number: US-BAXTER-2006BH010992

PATIENT
  Age: 52 Year
  Sex: Male
  Weight: 86 kg

DRUGS (25)
  1. GAMMAGARD S/D [Suspect]
     Indication: IMMUNODEFICIENCY COMMON VARIABLE
     Route: 042
     Dates: start: 20000101, end: 20040409
  2. ANTIHYPERTENSIVES [Concomitant]
     Indication: DRUG USE FOR UNKNOWN INDICATION
     Route: 065
  3. SIMVASTATIN [Concomitant]
     Indication: DRUG USE FOR UNKNOWN INDICATION
     Route: 065
  4. EFFEXOR [Concomitant]
     Indication: DRUG USE FOR UNKNOWN INDICATION
     Route: 065
  5. ZYRTEC [Concomitant]
     Indication: DRUG USE FOR UNKNOWN INDICATION
     Route: 065
  6. INSULIN [Concomitant]
     Route: 065
  7. BENADRYL [Concomitant]
     Indication: PREMEDICATION
  8. PREGABALIN [Concomitant]
     Indication: PHANTOM PAIN
     Route: 048
  9. PLAVIX [Concomitant]
     Indication: ARTERIAL OCCLUSIVE DISEASE
     Route: 048
  10. SINGULAIR [Concomitant]
     Indication: NASAL CONGESTION
     Route: 048
  11. SYNTHROID [Concomitant]
     Indication: THYROID DISORDER
     Route: 048
  12. IMMUNE GLOBULIN INTRAVENOUS (HUMAN) [Concomitant]
     Indication: IMMUNODEFICIENCY
     Route: 042
  13. ANTIDEPRESSANTS [Concomitant]
     Indication: AFFECTIVE DISORDER
     Route: 048
  14. ASPIRIN [Concomitant]
     Indication: CARDIOVASCULAR DISORDER
     Route: 048
  15. CARVEDILOL [Concomitant]
     Indication: CARDIOVASCULAR DISORDER
     Route: 048
  16. NIASPAN [Concomitant]
     Indication: BLOOD CHOLESTEROL
     Route: 048
  17. PROTONIX [Concomitant]
     Indication: HYPERCHLORHYDRIA
     Route: 048
  18. PAREGORIC [Concomitant]
     Route: 048
  19. WELCHOL [Concomitant]
     Route: 048
  20. LOMOTIL [Concomitant]
     Route: 048
  21. VITAMIN D [Concomitant]
     Indication: VITAMIN D DEFICIENCY
     Route: 048
  22. VITRON-C [Concomitant]
     Indication: MINERAL SUPPLEMENTATION
     Route: 048
  23. ALTACE [Concomitant]
     Indication: BLOOD PRESSURE
     Route: 048
  24. ANDROGEL [Concomitant]
     Indication: ANDROGEN DEFICIENCY
     Route: 048
  25. EZETIMIBE [Concomitant]
     Indication: BLOOD CHOLESTEROL
     Route: 048

REACTIONS (5)
  - CEREBROVASCULAR ACCIDENT [None]
  - DIARRHOEA [None]
  - MEDICAL DEVICE COMPLICATION [None]
  - PRODUCT RECONSTITUTION ISSUE [None]
  - THROMBOCYTOPENIA [None]
